FAERS Safety Report 24993110 (Version 1)
Quarter: 2025Q1

REPORT INFORMATION
  Report Type: Spontaneous
  Country: BG (occurrence: BG)
  Receive Date: 20250221
  Receipt Date: 20250221
  Transmission Date: 20250409
  Serious: Yes (Death, Hospitalization, Other)
  Sender: SANOFI AVENTIS
  Company Number: BG-SA-2025SA050749

PATIENT
  Age: 73 Year
  Sex: Female

DRUGS (1)
  1. FABRAZYME [Suspect]
     Active Substance: AGALSIDASE BETA
     Indication: Fabry^s disease
     Route: 042
     Dates: start: 2019, end: 20250123

REACTIONS (5)
  - Pneumonia [Fatal]
  - Oxygen saturation decreased [Fatal]
  - Blood creatinine increased [Fatal]
  - Anuria [Fatal]
  - Upper respiratory tract infection [Fatal]

NARRATIVE: CASE EVENT DATE: 20250201
